FAERS Safety Report 17449285 (Version 1)
Quarter: 2020Q1

REPORT INFORMATION
  Report Type: Spontaneous
  Country: IN (occurrence: IN)
  Receive Date: 20200224
  Receipt Date: 20200224
  Transmission Date: 20200409
  Serious: Yes (Other)
  Sender: FDA-Public Use
  Company Number: IN-STRIDES ARCOLAB LIMITED-2020SP001713

PATIENT
  Age: 24 Year
  Sex: Male

DRUGS (3)
  1. DIETHYLCARBAMAZINE [Suspect]
     Active Substance: DIETHYLCARBAMAZINE
     Indication: FILARIASIS LYMPHATIC
     Dosage: UNK (TRIPLE DRUG THERAPY)
     Route: 065
  2. ALBENDAZOLE. [Suspect]
     Active Substance: ALBENDAZOLE
     Indication: FILARIASIS LYMPHATIC
     Dosage: UNK (TRIPLE DRUG THERAPY)
     Route: 065
  3. IVERMECTIN. [Suspect]
     Active Substance: IVERMECTIN
     Indication: FILARIASIS LYMPHATIC
     Dosage: UNK (TRIPLE DRUG THERAPY)
     Route: 065

REACTIONS (7)
  - Scrotal swelling [Recovered/Resolved]
  - Testicular pain [Unknown]
  - Pain [Unknown]
  - Pyrexia [Unknown]
  - Headache [Unknown]
  - Off label use [Unknown]
  - Testicular swelling [Recovered/Resolved]
